FAERS Safety Report 18412957 (Version 1)
Quarter: 2020Q4

REPORT INFORMATION
  Report Type: Report from Study
  Country: None (occurrence: US)
  Receive Date: 20201022
  Receipt Date: 20201022
  Transmission Date: 20210114
  Serious: Yes (Other)
  Sender: FDA-Public Use
  Company Number: US-ABBVIE-20K-163-3616237-00

PATIENT
  Age: 87 Year
  Sex: Female

DRUGS (3)
  1. TYLENOL [Concomitant]
     Active Substance: ACETAMINOPHEN
     Indication: PRODUCT USED FOR UNKNOWN INDICATION
  2. IMBRUVICA [Suspect]
     Active Substance: IBRUTINIB
     Indication: CHRONIC LYMPHOCYTIC LEUKAEMIA
     Route: 048
  3. IMBRUVICA [Suspect]
     Active Substance: IBRUTINIB
     Indication: CHRONIC LYMPHOCYTIC LEUKAEMIA
     Route: 048
     Dates: start: 20140430

REACTIONS (8)
  - Excessive cerumen production [Recovering/Resolving]
  - Ear infection [Recovering/Resolving]
  - Reading disorder [Unknown]
  - Bladder prolapse [Recovered/Resolved]
  - Nail disorder [Unknown]
  - Ear pain [Recovering/Resolving]
  - Throat clearing [Unknown]
  - Gait disturbance [Unknown]

NARRATIVE: CASE EVENT DATE: 202010
